APPROVED DRUG PRODUCT: FLUVOXAMINE MALEATE
Active Ingredient: FLUVOXAMINE MALEATE
Strength: 100MG
Dosage Form/Route: TABLET;ORAL
Application: A075887 | Product #003
Applicant: UPSHER SMITH LABORATORIES LLC
Approved: Jan 5, 2001 | RLD: No | RS: No | Type: DISCN